FAERS Safety Report 8603193-5 (Version None)
Quarter: 2012Q3

REPORT INFORMATION
  Report Type: 
  Country: None (occurrence: None)
  Receive Date: 20120817
  Receipt Date: 20120813
  Transmission Date: 20120928
  Serious: Yes (Life-Threatening, Hospitalization)
  Sender: FDA-Public Use
  Company Number: GB-ASTRAZENECA-2012SE56962

PATIENT
  Age: 73 Year
  Sex: Male
  Weight: 85 kg

DRUGS (2)
  1. TICAGRELOR [Suspect]
     Indication: STENT PLACEMENT
     Route: 048
     Dates: start: 20120730, end: 20120801
  2. ASPIRIN [Concomitant]

REACTIONS (3)
  - DRUG INEFFECTIVE [None]
  - THROMBOSIS IN DEVICE [None]
  - MYOCARDIAL INFARCTION [None]
